FAERS Safety Report 5515297-4 (Version None)
Quarter: 2007Q4

REPORT INFORMATION
  Report Type: 
  Country: None (occurrence: None)
  Receive Date: 20071113
  Receipt Date: 20071107
  Transmission Date: 20080405
  Serious: Yes (Hospitalization)
  Sender: FDA-Public Use
  Company Number: US-BOEHRINGER INGELHEIM PHARMACEUTICALS, INC.-2007-BP-21409BP

PATIENT
  Sex: Female

DRUGS (20)
  1. AGGRENOX [Suspect]
     Indication: ANTICOAGULANT THERAPY
  2. COREG [Concomitant]
  3. COZAAR [Concomitant]
  4. FEMARA [Concomitant]
  5. ADVAIR DISKUS 100/50 [Concomitant]
  6. COLCHINICAN [Concomitant]
  7. NEXIUM [Concomitant]
  8. FOLTEX [Concomitant]
  9. UTRAM [Concomitant]
  10. LASIX [Concomitant]
  11. SINGULAIR [Concomitant]
     Indication: ASTHMA
  12. SINGULAIR [Concomitant]
     Indication: MULTIPLE ALLERGIES
  13. KLOR-CON [Concomitant]
     Indication: BLOOD POTASSIUM DECREASED
  14. REGLAN [Concomitant]
  15. BENADRYL [Concomitant]
  16. ZOLOFT [Concomitant]
  17. ALLEGRA [Concomitant]
  18. NEURONTIN [Concomitant]
  19. FERROUS SULFATE TAB [Concomitant]
  20. MAXALT [Concomitant]
     Indication: MIGRAINE

REACTIONS (3)
  - GASTRIC HAEMORRHAGE [None]
  - HAEMATEMESIS [None]
  - HAEMATOCHEZIA [None]
